FAERS Safety Report 6706002-4 (Version None)
Quarter: 2010Q2

REPORT INFORMATION
  Report Type: 
  Country: None (occurrence: None)
  Receive Date: 20100430
  Receipt Date: 20100430
  Transmission Date: 20101027
  Serious: Yes (Death)
  Sender: FDA-Public Use
  Company Number: None

PATIENT
  Age: 81 Year
  Sex: Female
  Weight: 49.8957 kg

DRUGS (1)
  1. HUMIRA [Suspect]
     Indication: RHEUMATOID ARTHRITIS
     Dosage: TWICE A MONTH
     Dates: start: 20040501, end: 20051115

REACTIONS (3)
  - NON-HODGKIN'S LYMPHOMA [None]
  - OESOPHAGEAL CARCINOMA [None]
  - UNEVALUABLE EVENT [None]
